FAERS Safety Report 5011187-4 (Version None)
Quarter: 2006Q2

REPORT INFORMATION
  Report Type: 
  Country: None (occurrence: None)
  Receive Date: 20060523
  Receipt Date: 20060516
  Transmission Date: 20061013
  Serious: Yes (Life-Threatening, Hospitalization)
  Sender: FDA-Public Use
  Company Number: 200610020BNE

PATIENT
  Age: 53 Year
  Sex: Male

DRUGS (5)
  1. CIPROFLOXACIN [Suspect]
     Indication: LOWER RESPIRATORY TRACT INFECTION
     Dosage: 250 MG, BID, ORAL
     Route: 048
     Dates: start: 20051213
  2. VALPROATE SODIUM [Concomitant]
  3. TEGRETORL RETARD [Concomitant]
  4. TOPIRAMATE [Concomitant]
  5. SIMVASTATIN [Concomitant]

REACTIONS (1)
  - CONVULSION [None]
